FAERS Safety Report 22279981 (Version 2)
Quarter: 2023Q2

REPORT INFORMATION
  Report Type: Spontaneous
  Country: AT (occurrence: AT)
  Receive Date: 20230503
  Receipt Date: 20230510
  Transmission Date: 20230722
  Serious: Yes (Other)
  Sender: FDA-Public Use
  Company Number: AT-ROCHE-3332876

PATIENT
  Age: 72 Year
  Sex: Male

DRUGS (6)
  1. FLUOROURACIL [Suspect]
     Active Substance: FLUOROURACIL
     Indication: Rectal adenocarcinoma
     Dosage: UNK, THREE CYCLES
     Route: 065
  2. DOCETAXEL [Suspect]
     Active Substance: DOCETAXEL
     Indication: Rectal adenocarcinoma
     Dosage: UNK, THREE CYCLES
     Route: 065
  3. TRASTUZUMAB [Suspect]
     Active Substance: TRASTUZUMAB
     Indication: Rectal adenocarcinoma
     Dosage: UNK, THREE CYCLES
     Route: 065
  4. OXALIPLATIN [Suspect]
     Active Substance: OXALIPLATIN
     Indication: Rectal adenocarcinoma
     Dosage: UNK,THREE CYCLES
     Route: 065
  5. LEUCOVORIN [Suspect]
     Active Substance: LEUCOVORIN
     Indication: Rectal adenocarcinoma
     Dosage: UNK, THREE CYCLES
     Route: 065
  6. IRINOTECAN [Concomitant]
     Active Substance: IRINOTECAN
     Dosage: UNK
     Route: 065

REACTIONS (2)
  - Polyneuropathy [Unknown]
  - Off label use [Unknown]
